FAERS Safety Report 8941755 (Version 1)
Quarter: 2012Q4

REPORT INFORMATION
  Report Type: 
  Country: PL (occurrence: PL)
  Receive Date: 20121203
  Receipt Date: 20121203
  Transmission Date: 20130627
  Serious: Yes (Death, Other)
  Sender: FDA-Public Use
  Company Number: PHHY2012PL109408

PATIENT
  Age: 57 None
  Sex: Female

DRUGS (20)
  1. MYFORTIC [Suspect]
     Indication: RENAL TRANSPLANT
     Dosage: 750 mg, BID
     Dates: start: 20090128
  2. MYFORTIC [Suspect]
     Dosage: 360 mg, TID
     Dates: start: 20100705
  3. MYFORTIC [Suspect]
     Dosage: 180 mg, QID
  4. CERTICAN [Suspect]
     Dosage: 0.75 mg, BID
  5. CERTICAN [Suspect]
     Dosage: 1 mg + 0.75 mg
  6. CERTICAN [Suspect]
     Dosage: 1 mg, BID
     Dates: start: 20101028
  7. ENCORTON [Concomitant]
     Dosage: UNK
  8. ENCORTON [Concomitant]
     Dosage: 5 mg every second day
  9. OMEPRAZOL [Concomitant]
     Dosage: UNK
     Dates: start: 200804
  10. CONCOR COR [Concomitant]
  11. TRITACE [Concomitant]
  12. LORISTA [Concomitant]
  13. INDAPEN [Concomitant]
  14. POLFILIN [Concomitant]
  15. TARDYFERON [Concomitant]
  16. OSTOLEK [Concomitant]
  17. HISTIMERCK [Concomitant]
  18. ACARD [Concomitant]
  19. INSULINE [Concomitant]
  20. NEORECORMON [Concomitant]
     Dosage: 2000 U/week
     Dates: start: 200910

REACTIONS (25)
  - Death [Fatal]
  - Ligament sprain [Unknown]
  - Complications of transplanted kidney [Unknown]
  - Electrolyte imbalance [Unknown]
  - Hyperkeratosis [Unknown]
  - Mucosal inflammation [Unknown]
  - Diabetic neuropathy [Unknown]
  - Hypotonia [Unknown]
  - Hypoaesthesia [Unknown]
  - Autonomic nervous system imbalance [Unknown]
  - Blood glucose fluctuation [Unknown]
  - Dehydration [Unknown]
  - Musculoskeletal pain [Unknown]
  - Brain neoplasm [Unknown]
  - Fatigue [Unknown]
  - Vomiting [Unknown]
  - Asthenia [Unknown]
  - Dizziness [Unknown]
  - Headache [Unknown]
  - Weight decreased [Unknown]
  - Decreased appetite [Unknown]
  - Hemiparesis [Unknown]
  - Depression [Unknown]
  - Dyspepsia [Unknown]
  - Anaemia [Unknown]
